FAERS Safety Report 5757404-4 (Version None)
Quarter: 2008Q2

REPORT INFORMATION
  Report Type: 
  Country: None (occurrence: None)
  Receive Date: 20080603
  Receipt Date: 20080522
  Transmission Date: 20081010
  Serious: Yes (Other)
  Sender: FDA-Public Use
  Company Number: US-SANOFI-SYNTHELABO-A03200801978

PATIENT
  Age: 48 Year
  Sex: Female

DRUGS (3)
  1. RIBAVIRIN [Suspect]
     Indication: HEPATITIS C
     Dosage: UNK
     Route: 048
     Dates: start: 20010801, end: 20020201
  2. PEG-INTRON [Suspect]
     Indication: HEPATITIS C
     Route: 058
     Dates: start: 20010801, end: 20020201
  3. DEMEROL [Suspect]
     Indication: PAIN
     Dosage: UNK
     Route: 048

REACTIONS (3)
  - INSOMNIA [None]
  - SUICIDAL IDEATION [None]
  - WEIGHT DECREASED [None]
